FAERS Safety Report 19294628 (Version 1)
Quarter: 2021Q2

REPORT INFORMATION
  Report Type: Report from Study
  Country: US (occurrence: US)
  Receive Date: 20210524
  Receipt Date: 20210524
  Transmission Date: 20210717
  Serious: Yes (Hospitalization)
  Sender: FDA-Public Use
  Company Number: US-ACCORD-226061

PATIENT
  Sex: Male

DRUGS (1)
  1. CLOZAPINE ACCORD [Suspect]
     Active Substance: CLOZAPINE
     Indication: SCHIZOPHRENIA
     Dosage: STRENGTH?200 MG MORNING/ 350 MG EVENING, DAILY
     Route: 048

REACTIONS (3)
  - Withdrawal syndrome [Unknown]
  - Psychotic disorder [Unknown]
  - Treatment noncompliance [Unknown]
